FAERS Safety Report 16860438 (Version 1)
Quarter: 2019Q3

REPORT INFORMATION
  Report Type: Spontaneous
  Country: US (occurrence: US)
  Receive Date: 20190927
  Receipt Date: 20190927
  Transmission Date: 20191005
  Serious: No
  Sender: FDA-Public Use
  Company Number: US-BEH-2019107078

PATIENT
  Age: 59 Year
  Sex: Female

DRUGS (1)
  1. HIZENTRA [Suspect]
     Active Substance: HUMAN IMMUNOGLOBULIN G
     Indication: IMMUNODEFICIENCY COMMON VARIABLE
     Dosage: 20 GRAM, QOW
     Route: 058
     Dates: start: 201903

REACTIONS (6)
  - Migraine [Unknown]
  - Nausea [Unknown]
  - Feeling abnormal [Unknown]
  - Malaise [Unknown]
  - Gastric disorder [Unknown]
  - Acute stress disorder [Unknown]

NARRATIVE: CASE EVENT DATE: 201909
